FAERS Safety Report 17411657 (Version 1)
Quarter: 2020Q1

REPORT INFORMATION
  Report Type: Spontaneous
  Country: US (occurrence: US)
  Receive Date: 20200129
  Receipt Date: 20200129
  Transmission Date: 20200409
  Serious: No
  Sender: FDA-Public Use
  Company Number: None

PATIENT
  Age: 63 Year
  Sex: Female
  Weight: 135 kg

DRUGS (2)
  1. ORAL SEMAGLUTIDE 3MG [Suspect]
     Active Substance: SEMAGLUTIDE
     Indication: TYPE 2 DIABETES MELLITUS
     Route: 048
     Dates: start: 201912, end: 20191231
  2. ORAL SEMAGLUTIDE 14MG [Suspect]
     Active Substance: SEMAGLUTIDE
     Indication: TYPE 2 DIABETES MELLITUS
     Route: 048
     Dates: start: 20191201, end: 20191208

REACTIONS (12)
  - Myalgia [None]
  - Feeling jittery [None]
  - Memory impairment [None]
  - Pain in extremity [None]
  - Disturbance in attention [None]
  - Muscular weakness [None]
  - Abdominal pain [None]
  - Depression [None]
  - Heart rate increased [None]
  - Headache [None]
  - Pain [None]
  - Muscle tightness [None]

NARRATIVE: CASE EVENT DATE: 20191202
